FAERS Safety Report 6913524-X (Version None)
Quarter: 2010Q3

REPORT INFORMATION
  Report Type: 
  Country: None (occurrence: None)
  Receive Date: 20100719
  Receipt Date: 20100316
  Transmission Date: 20110219
  Serious: Yes (Other)
  Sender: FDA-Public Use
  Company Number: US-WYE-H14180310

PATIENT
  Age: 50 Year
  Sex: Female
  Weight: 56.75 kg

DRUGS (2)
  1. ADVIL [Suspect]
     Indication: PAIN
     Dosage: 2 TABLETS AS NEEDED, ORAL
     Route: 048
     Dates: end: 20100321
  2. MUCINEX [Suspect]
     Dosage: ORAL
     Route: 048
     Dates: start: 20100303

REACTIONS (2)
  - LIP SWELLING [None]
  - URTICARIA [None]
